FAERS Safety Report 5221237-8 (Version None)
Quarter: 2006Q4

REPORT INFORMATION
  Report Type: 
  Country: None (occurrence: None)
  Receive Date: 20061201
  Receipt Date: 20060727
  Transmission Date: 20070319
  Serious: No
  Sender: FDA-Public Use
  Company Number: 2006PV014973

PATIENT
  Age: 47 Year
  Sex: Female
  Weight: 105.6881 kg

DRUGS (6)
  1. BYETTA [Suspect]
     Indication: DIABETES MELLITUS NON-INSULIN-DEPENDENT
     Dosage: 5 MCG;BID;SC
     Route: 058
     Dates: start: 20060527
  2. GLUCOPHAGE XL [Concomitant]
  3. NOVOLOG [Concomitant]
  4. AMARYL [Concomitant]
  5. ATACAND [Concomitant]
  6. LAMICTAL [Concomitant]

REACTIONS (3)
  - BLOOD GLUCOSE INCREASED [None]
  - NAUSEA [None]
  - VOMITING [None]
